FAERS Safety Report 7889277-8 (Version None)
Quarter: 2011Q4

REPORT INFORMATION
  Report Type: 
  Country: None (occurrence: None)
  Receive Date: 20111101
  Receipt Date: 20111018
  Transmission Date: 20120403
  Serious: Yes (Other)
  Sender: FDA-Public Use
  Company Number: AUR-APL-2011-05357

PATIENT
  Age: 43 Year
  Sex: Female
  Weight: 79.82 kg

DRUGS (3)
  1. ADVIL (MEFENAMIC ACID) [Concomitant]
  2. CITALOPRAM HYDROBROMIDE [Suspect]
     Indication: DEPRESSION
     Dosage: 40; 20  MG (40;20  MG, 1 IN 1 D) ORAL
     Route: 048
     Dates: start: 20081001
  3. CITALOPRAM HYDROBROMIDE [Suspect]
     Indication: DEPRESSION
     Dosage: 40; 20  MG (40;20  MG, 1 IN 1 D) ORAL
     Route: 048
     Dates: start: 19990101

REACTIONS (7)
  - WRONG TECHNIQUE IN DRUG USAGE PROCESS [None]
  - SPEECH DISORDER [None]
  - MANIA [None]
  - CRYING [None]
  - INSOMNIA [None]
  - PSYCHOMOTOR HYPERACTIVITY [None]
  - FEELING ABNORMAL [None]
